FAERS Safety Report 4941819-8 (Version None)
Quarter: 2006Q1

REPORT INFORMATION
  Report Type: 
  Country: None (occurrence: None)
  Receive Date: 20060307
  Receipt Date: 20060220
  Transmission Date: 20060701
  Serious: Yes (Other)
  Sender: FDA-Public Use
  Company Number: ES-2006-003652

PATIENT
  Age: 33 Year
  Sex: Female

DRUGS (1)
  1. MIRENA [Suspect]
     Indication: CONTRACEPTION
     Dosage: 20 UG/DAY CONT INTRA-UTERINE
     Route: 015
     Dates: start: 20051220, end: 20060101

REACTIONS (3)
  - LOSS OF CONSCIOUSNESS [None]
  - OVARIAN CYST RUPTURED [None]
  - VAGINAL HAEMORRHAGE [None]
